FAERS Safety Report 19198575 (Version 1)
Quarter: 2021Q2

REPORT INFORMATION
  Report Type: Spontaneous
  Country: US (occurrence: US)
  Receive Date: 20210430
  Receipt Date: 20210430
  Transmission Date: 20210717
  Serious: No
  Sender: FDA-Public Use
  Company Number: US-SA-2021SA142620

PATIENT
  Age: 51 Year
  Sex: Female
  Weight: 79.7 kg

DRUGS (2)
  1. DUPIXENT [Suspect]
     Active Substance: DUPILUMAB
     Indication: DERMATITIS
     Dosage: 300 MG, QOW
     Route: 058
     Dates: start: 20170910
  2. DUPIXENT [Suspect]
     Active Substance: DUPILUMAB
     Dosage: 300 MG, QOW
     Route: 058

REACTIONS (8)
  - Dermatitis [Unknown]
  - Skin fissures [Unknown]
  - Product dose omission in error [Unknown]
  - Dry skin [Unknown]
  - Product use in unapproved indication [Unknown]
  - Injection site urticaria [Unknown]
  - Injection site irritation [Unknown]
  - Shoulder operation [Unknown]

NARRATIVE: CASE EVENT DATE: 20170910
